FAERS Safety Report 4739734-8 (Version None)
Quarter: 2005Q3

REPORT INFORMATION
  Report Type: 
  Country: None (occurrence: None)
  Receive Date: 20050810
  Receipt Date: 20050505
  Transmission Date: 20060218
  Serious: No
  Sender: FDA-Public Use
  Company Number: US-GLAXOSMITHKLINE-A0557416A

PATIENT
  Sex: Female

DRUGS (2)
  1. PAXIL [Suspect]
  2. PAXIL CR [Concomitant]

REACTIONS (1)
  - MALAISE [None]
